FAERS Safety Report 5312997-6 (Version None)
Quarter: 2007Q2

REPORT INFORMATION
  Report Type: 
  Country: None (occurrence: None)
  Receive Date: 20070430
  Receipt Date: 20070418
  Transmission Date: 20071010
  Serious: Yes (Other)
  Sender: FDA-Public Use
  Company Number: US-PFIZER INC-2007011407

PATIENT
  Sex: Male
  Weight: 108.9 kg

DRUGS (3)
  1. LYRICA [Suspect]
     Indication: NEURALGIA
     Route: 048
     Dates: start: 20061101, end: 20061101
  2. LYRICA [Suspect]
     Indication: RADICULOPATHY
  3. VICODIN [Concomitant]

REACTIONS (3)
  - DIZZINESS [None]
  - FALL [None]
  - SYNCOPE [None]
